FAERS Safety Report 5219568-0 (Version None)
Quarter: 2007Q1

REPORT INFORMATION
  Report Type: 
  Country: None (occurrence: None)
  Receive Date: 20061201
  Receipt Date: 20060705
  Transmission Date: 20070707
  Serious: No
  Sender: FDA-Public Use
  Company Number: 2006PV016989

PATIENT
  Age: 33 Year
  Sex: Female
  Weight: 91.173 kg

DRUGS (5)
  1. BYETTA [Suspect]
     Indication: DIABETES MELLITUS NON-INSULIN-DEPENDENT
     Dosage: 10 MCG; BID
     Dates: start: 20060101
  2. BYETTA [Suspect]
     Dosage: 10 MCG; 5 MCG; BID; SC
     Route: 058
     Dates: start: 20060401, end: 20060601
  3. BYETTA [Suspect]
     Dosage: 10 MCG; 5 MCG; BID; SC
     Route: 058
     Dates: start: 20060601, end: 20060703
  4. METFORMIN HCL [Suspect]
     Dates: end: 20060501
  5. FORTAMET [Suspect]
     Dosage: 1000 MG; QD; PO
     Route: 048
     Dates: start: 20060601, end: 20060601

REACTIONS (8)
  - ASTHENIA [None]
  - BLINDNESS TRANSIENT [None]
  - BLOOD GLUCOSE DECREASED [None]
  - DIZZINESS [None]
  - NAUSEA [None]
  - VISUAL DISTURBANCE [None]
  - VOMITING [None]
  - WEIGHT DECREASED [None]
